FAERS Safety Report 10074241 (Version 1)
Quarter: 2014Q2

REPORT INFORMATION
  Report Type: Spontaneous
  Country: US (occurrence: US)
  Receive Date: 20140411
  Receipt Date: 20140411
  Transmission Date: 20141212
  Serious: No
  Sender: FDA-Public Use
  Company Number: US-SANOFI-AVENTIS-2013SA037993

PATIENT
  Sex: 0

DRUGS (2)
  1. ALLEGRA D [Suspect]
     Indication: PRODUCT USED FOR UNKNOWN INDICATION
     Dosage: TAKEN FROM- SUNDAY 07-APR-2013 AND MONDAY 08-APR-2013
     Route: 065
  2. ORTHO TRI-CYCLEN [Concomitant]

REACTIONS (1)
  - Medication residue present [Unknown]
